FAERS Safety Report 4777731-7 (Version None)
Quarter: 2005Q3

REPORT INFORMATION
  Report Type: 
  Country: None (occurrence: None)
  Receive Date: 20050921
  Receipt Date: 20050901
  Transmission Date: 20060218
  Serious: Yes (Other)
  Sender: FDA-Public Use
  Company Number: USA050597925

PATIENT
  Age: 59 Year
  Sex: Female

DRUGS (5)
  1. FORTEO [Suspect]
     Indication: BONE DENSITY DECREASED
     Dates: start: 20050101
  2. PREMARIN [Concomitant]
  3. PROVERA [Concomitant]
  4. ESTRATEST H.S. [Concomitant]
  5. CALCIUM GLUCONATE [Concomitant]

REACTIONS (3)
  - BLOOD CALCIUM INCREASED [None]
  - PHARMACEUTICAL PRODUCT COMPLAINT [None]
  - VAGINAL HAEMORRHAGE [None]
